FAERS Safety Report 17778147 (Version 5)
Quarter: 2020Q3

REPORT INFORMATION
  Report Type: Report from Study
  Country: US (occurrence: US)
  Receive Date: 20200513
  Receipt Date: 20200929
  Transmission Date: 20201102
  Serious: No
  Sender: FDA-Public Use
  Company Number: NVSC2020US129796

PATIENT
  Sex: Female

DRUGS (3)
  1. COSENTYX [Suspect]
     Active Substance: SECUKINUMAB
     Dosage: 150 MG (ONCE A WEEK FOR 5 WEEKS AND AFTER Q4 WEEKS)
     Route: 058
     Dates: start: 20200501
  2. COSENTYX [Suspect]
     Active Substance: SECUKINUMAB
     Indication: PSORIATIC ARTHROPATHY
     Dosage: 150 MG, Q4W (BENEATH THE SKIN,USUALLY VIA INJECTION)
     Route: 058
     Dates: start: 202003
  3. COSENTYX [Suspect]
     Active Substance: SECUKINUMAB
     Indication: PSORIATIC ARTHROPATHY
     Dosage: 150 MG, OTHER (ONCE A WEEK FOR 5 WEEKS AND AFTER Q4 WEEKS)
     Route: 058
     Dates: start: 20200424

REACTIONS (8)
  - Inflammation [Not Recovered/Not Resolved]
  - Muscle spasms [Unknown]
  - Temporomandibular joint syndrome [Unknown]
  - Tendon pain [Unknown]
  - Pain in extremity [Unknown]
  - Back pain [Not Recovered/Not Resolved]
  - Stress [Unknown]
  - Arthralgia [Not Recovered/Not Resolved]
